FAERS Safety Report 4364039-7 (Version None)
Quarter: 2004Q2

REPORT INFORMATION
  Report Type: 
  Country: None (occurrence: None)
  Receive Date: 20040520
  Receipt Date: 20040520
  Transmission Date: 20050107
  Serious: No
  Sender: FDA-Public Use
  Company Number: None

PATIENT
  Age: 17 Year
  Sex: Female
  Weight: 87.0906 kg

DRUGS (1)
  1. RISPERDAL [Suspect]
     Indication: BIPOLAR DISORDER
     Dosage: 1 PO SID ORAL
     Route: 048
     Dates: start: 20040426, end: 20040429

REACTIONS (1)
  - TARDIVE DYSKINESIA [None]
